FAERS Safety Report 8799563 (Version 2)
Quarter: 2014Q1

REPORT INFORMATION
  Report Type: Spontaneous
  Country: US (occurrence: US)
  Receive Date: 20120919
  Receipt Date: 20140204
  Transmission Date: 20141002
  Serious: No
  Sender: FDA-Public Use
  Company Number: US-PFIZER INC-2012230211

PATIENT
  Age: 79 Year
  Sex: Female
  Weight: 59.86 kg

DRUGS (9)
  1. NIFEDIPINE [Suspect]
     Indication: HYPERTENSION
     Dosage: 90 MG, 1X/DAY
     Route: 048
     Dates: start: 2003, end: 201201
  2. KEPPRA [Concomitant]
     Dosage: 500 MG, UNK
  3. HYDROCHLOROTHIAZIDE [Concomitant]
     Dosage: 25 MG, 1X/DAY
  4. ASPIRIN [Concomitant]
     Dosage: 325 MG, 1X/DAY
  5. INSULIN [Concomitant]
     Indication: TYPE 2 DIABETES MELLITUS
     Dosage: UNK
  6. NITROGLYCERIN [Concomitant]
     Dosage: 0.4 MG, 2X/DAY
  7. PLAVIX [Concomitant]
     Dosage: 75 MG, UNK
  8. LOPRESSOR [Concomitant]
     Dosage: 12.5 MG, 2X/DAY
  9. AMARYL [Concomitant]
     Indication: TYPE 2 DIABETES MELLITUS
     Dosage: UNK

REACTIONS (2)
  - Drug ineffective [Unknown]
  - Malaise [Unknown]
